FAERS Safety Report 6051715-3 (Version None)
Quarter: 2009Q1

REPORT INFORMATION
  Report Type: 
  Country: None (occurrence: None)
  Receive Date: 20090126
  Receipt Date: 20090113
  Transmission Date: 20090719
  Serious: Yes (Other)
  Sender: FDA-Public Use
  Company Number: US-ROCHE-607654

PATIENT
  Sex: Male
  Weight: 80.7 kg

DRUGS (5)
  1. CAPECITABINE [Suspect]
     Dosage: STRENGTH: 500MG AND 150 MG 1 WEEK ON AND 1 WEEK OFF
     Route: 048
     Dates: start: 20080804, end: 20081125
  2. GEMZAR [Suspect]
     Route: 065
  3. HYDROCHLOROTHIAZIDE [Concomitant]
     Indication: HYPERTENSION
     Dosage: FREQUENCY: DAILY
     Route: 048
  4. ASPIRIN [Concomitant]
     Dosage: FREQUENCY: DAILY
     Route: 048
  5. FLOMAX [Concomitant]
     Dosage: FREQUENCY: DAILY
     Route: 048

REACTIONS (2)
  - DRUG INEFFECTIVE [None]
  - NEOPLASM PROGRESSION [None]
